FAERS Safety Report 7822317-0 (Version None)
Quarter: 2011Q4

REPORT INFORMATION
  Report Type: 
  Country: None (occurrence: None)
  Receive Date: 20111018
  Receipt Date: 20110228
  Transmission Date: 20120403
  Serious: No
  Sender: FDA-Public Use
  Company Number: US-ASTRAZENECA-2011SE10970

PATIENT
  Age: 57 Year
  Sex: Female

DRUGS (5)
  1. LYRICA [Concomitant]
  2. ALBUTEROL [Concomitant]
  3. ENALAPRIL MALEATE [Concomitant]
  4. COLESTIPOL HYDROCHLORIDE [Concomitant]
  5. SYMBICORT [Suspect]
     Indication: ASTHMA
     Dosage: 2 PUFFS BID
     Route: 055
     Dates: start: 20101101

REACTIONS (1)
  - DYSPNOEA [None]
